FAERS Safety Report 17979350 (Version 1)
Quarter: 2020Q3

REPORT INFORMATION
  Report Type: Spontaneous
  Country: CN (occurrence: CN)
  Receive Date: 20200703
  Receipt Date: 20200703
  Transmission Date: 20201103
  Serious: Yes (Other)
  Sender: FDA-Public Use
  Company Number: CN-ABBVIE-20P-035-3467462-00

PATIENT
  Age: 57 Year
  Sex: Female
  Weight: 50 kg

DRUGS (1)
  1. LIPANTHYL [Suspect]
     Active Substance: FENOFIBRATE
     Indication: HYPERLIPIDAEMIA
     Route: 048
     Dates: start: 20200612, end: 20200614

REACTIONS (2)
  - Myalgia [Recovering/Resolving]
  - Fatigue [Recovering/Resolving]

NARRATIVE: CASE EVENT DATE: 20200614
